FAERS Safety Report 24781518 (Version 1)
Quarter: 2024Q4

REPORT INFORMATION
  Report Type: Spontaneous
  Country: US (occurrence: US)
  Receive Date: 20241227
  Receipt Date: 20241227
  Transmission Date: 20250115
  Serious: No
  Sender: Kenvue
  Company Number: US-KENVUE-20241201450

PATIENT
  Sex: Male

DRUGS (6)
  1. IBUPROFEN [Suspect]
     Active Substance: IBUPROFEN
     Indication: Premedication
     Route: 065
  2. ZOFRAN [Concomitant]
     Active Substance: ONDANSETRON HYDROCHLORIDE
     Indication: Premedication
     Route: 065
  3. TZIELD [Concomitant]
     Active Substance: TEPLIZUMAB-MZWV
     Indication: Type 1 diabetes mellitus
     Dosage: 109.2 MICROGRAM, SINGLE
     Route: 042
     Dates: start: 20241011
  4. TZIELD [Concomitant]
     Active Substance: TEPLIZUMAB-MZWV
     Dosage: 210 MICROGRAM, SINGLE
     Route: 042
     Dates: start: 20241012
  5. TZIELD [Concomitant]
     Active Substance: TEPLIZUMAB-MZWV
     Dosage: 420 MICROGRAM, SINGLE
     Route: 042
     Dates: start: 20241013
  6. BENADRYL [Concomitant]
     Active Substance: DIPHENHYDRAMINE HYDROCHLORIDE
     Indication: Premedication
     Dosage: UNK
     Route: 065
     Dates: start: 20241011

REACTIONS (1)
  - Off label use [Unknown]
